FAERS Safety Report 6003041-6 (Version None)
Quarter: 2008Q4

REPORT INFORMATION
  Report Type: 
  Country: None (occurrence: None)
  Receive Date: 20081215
  Receipt Date: 20081205
  Transmission Date: 20090506
  Serious: Yes (Hospitalization)
  Sender: FDA-Public Use
  Company Number: US-PFIZER INC-2008084694

PATIENT
  Sex: Female
  Weight: 90.249 kg

DRUGS (12)
  1. BLINDED *PLACEBO [Suspect]
     Indication: OSTEOARTHRITIS
     Route: 048
     Dates: start: 20080819, end: 20081002
  2. CELECOXIB [Suspect]
     Indication: OSTEOARTHRITIS
     Route: 048
     Dates: start: 20080819, end: 20081002
  3. BLINDED IBUPROFEN [Suspect]
     Indication: OSTEOARTHRITIS
     Route: 048
     Dates: start: 20080819, end: 20081002
  4. BLINDED NAPROXEN [Suspect]
     Indication: OSTEOARTHRITIS
     Route: 048
     Dates: start: 20080819, end: 20081002
  5. GLIPIZIDE [Suspect]
     Indication: TYPE 2 DIABETES MELLITUS
     Route: 048
     Dates: start: 20070126, end: 20081007
  6. ACETYLSALICYLIC ACID [Concomitant]
     Route: 048
     Dates: start: 20011210
  7. PREDNISONE [Concomitant]
     Route: 048
     Dates: start: 20080819
  8. CADUET [Concomitant]
     Dosage: 10/10
     Route: 048
     Dates: start: 20061026
  9. MAXZIDE [Concomitant]
     Dosage: 25 37.5
     Route: 048
     Dates: start: 20070227
  10. PERCOCET [Concomitant]
     Dosage: 7.5/325 MG
     Route: 048
     Dates: start: 20080212
  11. LANTUS [Concomitant]
     Dosage: 20 U
     Route: 058
     Dates: start: 20080918
  12. HUMALOG [Concomitant]
     Dosage: 8-22 U
     Route: 058
     Dates: start: 20080918

REACTIONS (1)
  - ERYTHEMA NODOSUM [None]
